FAERS Safety Report 8847436 (Version 1)
Quarter: 2012Q4

REPORT INFORMATION
  Report Type: 
  Country: US (occurrence: US)
  Receive Date: 20121018
  Receipt Date: 20121018
  Transmission Date: 20130627
  Serious: Yes (Other)
  Sender: FDA-Public Use
  Company Number: US-PFIZER INC-2012257172

PATIENT
  Sex: Male

DRUGS (2)
  1. VIAGRA [Suspect]
     Indication: ANDROGEN DEFICIENCY
     Dosage: UNK
  2. TESTOSTERONE [Concomitant]
     Indication: ANDROGEN DEFICIENCY
     Dosage: UNK

REACTIONS (6)
  - Back disorder [Unknown]
  - Leukaemia [Unknown]
  - Arthropathy [Unknown]
  - Arthropathy [Unknown]
  - Headache [Unknown]
  - Off label use [Unknown]
